FAERS Safety Report 24606999 (Version 1)
Quarter: 2024Q4

REPORT INFORMATION
  Report Type: Report from Study
  Country: US (occurrence: US)
  Receive Date: 20241112
  Receipt Date: 20241112
  Transmission Date: 20250115
  Serious: Yes (Other)
  Sender: ABBVIE
  Company Number: US-ABBVIE-5993970

PATIENT
  Age: 61 Year
  Sex: Female

DRUGS (1)
  1. RINVOQ [Suspect]
     Active Substance: UPADACITINIB
     Indication: Crohn^s disease
     Route: 048

REACTIONS (6)
  - Neck surgery [Unknown]
  - Neck pain [Unknown]
  - Musculoskeletal discomfort [Unknown]
  - Vitamin B12 decreased [Unknown]
  - Muscle spasms [Recovered/Resolved]
  - Thermal burn [Unknown]

NARRATIVE: CASE EVENT DATE: 20240101
